FAERS Safety Report 6107836-X (Version None)
Quarter: 2009Q1

REPORT INFORMATION
  Report Type: 
  Country: None (occurrence: None)
  Receive Date: 20090302
  Receipt Date: 20080811
  Transmission Date: 20090719
  Serious: Yes (Hospitalization)
  Sender: FDA-Public Use
  Company Number: ALA_00103_2008

PATIENT
  Sex: Female
  Weight: 80.7403 kg

DRUGS (1)
  1. REGLAN [Suspect]
     Indication: NAUSEA
     Dosage: DF
     Dates: start: 20070616

REACTIONS (1)
  - HALLUCINATION, AUDITORY [None]
